FAERS Safety Report 15998158 (Version 2)
Quarter: 2019Q1

REPORT INFORMATION
  Report Type: Report from Study
  Country: US (occurrence: US)
  Receive Date: 20190223
  Receipt Date: 20190301
  Transmission Date: 20190418
  Serious: Yes (Hospitalization, Other)
  Sender: FDA-Public Use
  Company Number: US-ROCHE-2267986

PATIENT
  Age: 57 Year
  Sex: Male
  Weight: 64.47 kg

DRUGS (3)
  1. BETHANECHOL [Concomitant]
     Active Substance: BETHANECHOL
     Dosage: YES
     Route: 048
  2. OCREVUS [Suspect]
     Active Substance: OCRELIZUMAB
     Indication: PRIMARY PROGRESSIVE MULTIPLE SCLEROSIS
     Dosage: ONGOING; YES
     Route: 042
     Dates: start: 201706
  3. FLOMAX [Concomitant]
     Active Substance: TAMSULOSIN HYDROCHLORIDE
     Dosage: 0.4MG ;ONGOING: YES
     Route: 048

REACTIONS (5)
  - Pain [Not Recovered/Not Resolved]
  - Anuria [Recovered/Resolved]
  - Muscle spasms [Not Recovered/Not Resolved]
  - Streptococcal infection [Recovered/Resolved]
  - Wound secretion [Recovered/Resolved]

NARRATIVE: CASE EVENT DATE: 20181220
